FAERS Safety Report 5975726-9 (Version None)
Quarter: 2008Q4

REPORT INFORMATION
  Report Type: 
  Country: None (occurrence: None)
  Receive Date: 20081202
  Receipt Date: 20081119
  Transmission Date: 20090506
  Serious: Yes (Other)
  Sender: FDA-Public Use
  Company Number: PHHY2008US26278

PATIENT
  Sex: Male

DRUGS (1)
  1. EXJADE [Suspect]
     Indication: HAEMOCHROMATOSIS
     Dosage: 2500 MG/DAY
     Route: 048
     Dates: start: 20080929, end: 20081028

REACTIONS (5)
  - DIARRHOEA [None]
  - MALAISE [None]
  - NAUSEA [None]
  - URINE OUTPUT DECREASED [None]
  - WEIGHT DECREASED [None]
